FAERS Safety Report 9511186 (Version 1)
Quarter: 2013Q3

REPORT INFORMATION
  Report Type: Spontaneous
  Country: US (occurrence: None)
  Receive Date: 20130909
  Receipt Date: 20130909
  Transmission Date: 20140515
  Serious: No
  Sender: FDA-Public Use
  Company Number: None

PATIENT
  Age: 9 Year
  Sex: Female
  Weight: 61.24 kg

DRUGS (2)
  1. GENERIC PAXIL 20MG [Suspect]
     Indication: ANXIETY
     Dosage: 1 PILL ONCE DAILY TAKEN BY MOUTH?TOOK FOR A FEW DAYS
     Route: 048
  2. TEEN VITAMINS [Concomitant]

REACTIONS (4)
  - Product substitution issue [None]
  - Drug withdrawal syndrome [None]
  - Drug ineffective [None]
  - Product formulation issue [None]
